FAERS Safety Report 7815613-4 (Version None)
Quarter: 2011Q4

REPORT INFORMATION
  Report Type: 
  Country: None (occurrence: None)
  Receive Date: 20111014
  Receipt Date: 20111007
  Transmission Date: 20120403
  Serious: Yes (Hospitalization)
  Sender: FDA-Public Use
  Company Number: CA-GENZYME-CAMP-1001907

PATIENT
  Sex: Female
  Weight: 66.5 kg

DRUGS (15)
  1. ALEMTUZUMAB [Suspect]
     Dosage: 12 MG, QD
     Route: 042
     Dates: start: 20090112, end: 20090116
  2. CELEXA [Concomitant]
     Indication: PRODUCT USED FOR UNKNOWN INDICATION
     Dosage: 40 MG, QD
     Route: 048
     Dates: start: 20100715
  3. ZANTAC [Concomitant]
     Indication: PRODUCT USED FOR UNKNOWN INDICATION
     Dosage: 150 MG, UNK
     Dates: start: 20090112
  4. ACYCLOVIR [Concomitant]
     Indication: PRODUCT USED FOR UNKNOWN INDICATION
     Dosage: 200 MG, UNK
     Dates: start: 20100118
  5. ATARAX [Concomitant]
     Indication: PRODUCT USED FOR UNKNOWN INDICATION
     Dosage: 25 MG, UNK
     Dates: start: 20090112
  6. ACETAMINOPHEN [Concomitant]
     Indication: PRODUCT USED FOR UNKNOWN INDICATION
     Dosage: 650 MG, UNK
     Dates: start: 20090112
  7. ALEMTUZUMAB [Suspect]
     Indication: MULTIPLE SCLEROSIS
     Dosage: 12 MG, QD
     Route: 042
     Dates: start: 20100118, end: 20100120
  8. ROBAXACET [Concomitant]
     Indication: MULTIPLE SCLEROSIS
     Dosage: 1 TABLET, PRN
     Route: 048
     Dates: start: 20090316
  9. VENTOLIN [Concomitant]
     Indication: ASTHMA
     Dosage: 2 PUFFS, PRN
     Dates: start: 19800101
  10. ALEVE [Concomitant]
     Indication: HEADACHE
     Dosage: 220 MG, PRN
     Route: 048
     Dates: start: 20000101
  11. ALEVE [Concomitant]
     Indication: ARTHRALGIA
  12. LEVOTHYROXINE SODIUM [Concomitant]
     Indication: HYPERTHYROIDISM
     Dosage: 1.5 MG, QD
     Route: 048
     Dates: start: 20101216
  13. METHYLPREDNISOLONE [Concomitant]
     Indication: MULTIPLE SCLEROSIS
     Dosage: 1 G, QD
     Route: 042
     Dates: start: 20090112, end: 20090114
  14. METHYLPREDNISOLONE [Concomitant]
     Dosage: 1 G, QD
     Route: 042
     Dates: start: 20100118, end: 20100120
  15. IBUPROFEN (ADVIL) [Concomitant]
     Indication: PRODUCT USED FOR UNKNOWN INDICATION
     Dosage: 400 MG, PRN
     Route: 048
     Dates: start: 20100118

REACTIONS (3)
  - OVERDOSE [None]
  - SUICIDAL IDEATION [None]
  - DEPRESSION [None]
